FAERS Safety Report 6389817-4 (Version None)
Quarter: 2009Q4

REPORT INFORMATION
  Report Type: 
  Country: None (occurrence: None)
  Receive Date: 20091002
  Receipt Date: 20091002
  Transmission Date: 20100525
  Serious: No
  Sender: FDA-Public Use
  Company Number: None

PATIENT
  Age: 21 Year

DRUGS (3)
  1. MIDAZOLAM HCL [Suspect]
     Indication: SEDATION
     Dosage: 1-3MG AS NEED (042)
     Dates: start: 20090201
  2. BREVITAL SODIUM [Concomitant]
  3. FENTANYL [Concomitant]

REACTIONS (2)
  - NAUSEA [None]
  - VOMITING [None]
